FAERS Safety Report 14394024 (Version 1)
Quarter: 2018Q1

REPORT INFORMATION
  Report Type: Spontaneous
  Country: US (occurrence: US)
  Receive Date: 20180116
  Receipt Date: 20180116
  Transmission Date: 20180509
  Serious: No
  Sender: FDA-Public Use
  Company Number: US-REGENERON PHARMACEUTICALS, INC.-2017-12713

PATIENT

DRUGS (3)
  1. LISINOPRIL. [Concomitant]
     Active Substance: LISINOPRIL
     Indication: PRODUCT USED FOR UNKNOWN INDICATION
  2. EYLEA [Suspect]
     Active Substance: AFLIBERCEPT
     Indication: NEOVASCULAR AGE-RELATED MACULAR DEGENERATION
     Dosage: EVERY 6 WEEKS, RIGHT EYE (OD)
     Route: 031
     Dates: start: 20161227
  3. EYLEA [Suspect]
     Active Substance: AFLIBERCEPT
     Dosage: EVERY 6 WEEKS, RIGHT EYE (OD), THIRD INJECTON
     Route: 031
     Dates: start: 20170215, end: 20170215

REACTIONS (5)
  - Lacrimation increased [Recovering/Resolving]
  - Vitreous floaters [Unknown]
  - Visual impairment [Unknown]
  - Photophobia [Unknown]
  - Administration related reaction [Recovered/Resolved]

NARRATIVE: CASE EVENT DATE: 20170215
